FAERS Safety Report 24895501 (Version 4)
Quarter: 2025Q1

REPORT INFORMATION
  Report Type: Spontaneous
  Country: US (occurrence: US)
  Receive Date: 20250128
  Receipt Date: 20250331
  Transmission Date: 20250408
  Serious: No
  Sender: PFIZER
  Company Number: US-PFIZER INC-202500016410

PATIENT
  Age: 16 Year
  Sex: Male

DRUGS (2)
  1. GENOTROPIN [Suspect]
     Active Substance: SOMATROPIN
     Indication: Short stature
  2. GENOTROPIN [Suspect]
     Active Substance: SOMATROPIN
     Dosage: 3.0 MG, DAILY (1 NIGHTLY/WEEK)

REACTIONS (4)
  - Device mechanical issue [Unknown]
  - Device breakage [Unknown]
  - Drug dose omission by device [Unknown]
  - Wrong technique in product usage process [Unknown]
